FAERS Safety Report 9904466 (Version 2)
Quarter: 2014Q1

REPORT INFORMATION
  Report Type: Spontaneous
  Country: DE (occurrence: DE)
  Receive Date: 20140218
  Receipt Date: 20140227
  Transmission Date: 20141002
  Serious: Yes (Other)
  Sender: FDA-Public Use
  Company Number: DE-AMGEN-DEUSP2014010526

PATIENT
  Age: 72 Year
  Sex: Female

DRUGS (2)
  1. PROLIA [Suspect]
     Indication: OSTEOPOROSIS POSTMENOPAUSAL
     Dosage: 60 MG, UNK
     Route: 058
     Dates: start: 20140116
  2. VITAMIN D                          /00107901/ [Concomitant]
     Indication: OSTEOPOROSIS
     Dosage: 1000 UNK, QD

REACTIONS (5)
  - Skin necrosis [Recovering/Resolving]
  - Local swelling [Recovering/Resolving]
  - Paraesthesia [Unknown]
  - Erythema [Recovering/Resolving]
  - Pain in extremity [Recovering/Resolving]
